FAERS Safety Report 6406858-9 (Version None)
Quarter: 2009Q4

REPORT INFORMATION
  Report Type: 
  Country: None (occurrence: None)
  Receive Date: 20091020
  Receipt Date: 20091007
  Transmission Date: 20100525
  Serious: Yes (Congenital Anomaly, Other)
  Sender: FDA-Public Use
  Company Number: GB-ROCHE-661210

PATIENT
  Sex: Male
  Weight: 2.7 kg

DRUGS (6)
  1. INVIRASE [Suspect]
     Route: 064
  2. COMBIVIR [Suspect]
     Route: 064
  3. EPZICOM [Suspect]
     Route: 064
     Dates: end: 20051225
  4. KIVEXA [Suspect]
     Route: 064
  5. NORVIR [Suspect]
     Route: 064
  6. VIRAMUNE [Suspect]
     Route: 064
     Dates: end: 20051225

REACTIONS (4)
  - ALPHA 1 FOETOPROTEIN INCREASED [None]
  - DRUG EXPOSURE DURING PREGNANCY [None]
  - LABORATORY TEST ABNORMAL [None]
  - NORMAL NEWBORN [None]
